FAERS Safety Report 6823213-8 (Version None)
Quarter: 2010Q3

REPORT INFORMATION
  Report Type: 
  Country: None (occurrence: None)
  Receive Date: 20100708
  Receipt Date: 20100701
  Transmission Date: 20110219
  Serious: Yes (Hospitalization)
  Sender: FDA-Public Use
  Company Number: DE-ELI_LILLY_AND_COMPANY-DE201007000377

PATIENT
  Sex: Female
  Weight: 40 kg

DRUGS (6)
  1. PEMETREXED [Suspect]
     Indication: HEAD AND NECK CANCER
     Dosage: 500 MG/M2, DAY 1 EVERY 21 DAYS
     Route: 042
     Dates: start: 20100526
  2. CETUXIMAB [Suspect]
     Indication: HEAD AND NECK CANCER
     Dosage: 400 MG/M2, DAY 1 OF CYCLE 1 THEN 250MG/M2 WEEKLY
     Route: 042
     Dates: start: 20100526
  3. CISPLATIN [Suspect]
     Indication: HEAD AND NECK CANCER
     Dosage: 75 MG/M2, DAY1 EVERY 21 DAYS
     Route: 042
     Dates: start: 20100526
  4. FOLIC ACID [Concomitant]
     Indication: PROPHYLAXIS
  5. VITAMIN B-12 [Concomitant]
     Indication: PROPHYLAXIS
  6. DEXAMETHASONE [Concomitant]
     Indication: PROPHYLAXIS

REACTIONS (2)
  - FATIGUE [None]
  - HYPOTENSION [None]
